FAERS Safety Report 15657310 (Version 1)
Quarter: 2018Q4

REPORT INFORMATION
  Report Type: Report from Study
  Country: RO (occurrence: RO)
  Receive Date: 20181126
  Receipt Date: 20181126
  Transmission Date: 20190205
  Serious: Yes (Other)
  Sender: FDA-Public Use
  Company Number: RO-GILEAD-2018-0375433

PATIENT
  Age: 69 Year
  Sex: Female

DRUGS (11)
  1. PENTOXIFILIN [Concomitant]
  2. FUROSEMID [FUROSEMIDE] [Concomitant]
  3. ASPENTER [Concomitant]
     Active Substance: ASPIRIN
  4. PROPANOLOL [PROPRANOLOL] [Concomitant]
     Active Substance: PROPRANOLOL HYDROCHLORIDE
  5. BETASERC [BETAHISTINE] [Concomitant]
  6. PRESTARIUM [PERINDOPRIL] [Concomitant]
  7. LEDIPASVIR/SOFOSBUVIR [Suspect]
     Active Substance: LEDIPASVIR\SOFOSBUVIR
     Indication: HEPATITIS C
     Dosage: 1 DF, QD
     Route: 048
     Dates: start: 20181109
  8. BILOBIL [Concomitant]
     Active Substance: GINKGO
  9. RIVOTRIL [Concomitant]
     Active Substance: CLONAZEPAM
  10. NITRAZEPAM [Concomitant]
     Active Substance: NITRAZEPAM
  11. LEDIPASVIR/SOFOSBUVIR [Suspect]
     Active Substance: LEDIPASVIR\SOFOSBUVIR
     Indication: HEPATIC CIRRHOSIS

REACTIONS (9)
  - Pain [Not Recovered/Not Resolved]
  - Choking sensation [Not Recovered/Not Resolved]
  - Asthenia [Not Recovered/Not Resolved]
  - Insomnia [Not Recovered/Not Resolved]
  - Headache [Not Recovered/Not Resolved]
  - Vision blurred [Not Recovered/Not Resolved]
  - Eye pain [Not Recovered/Not Resolved]
  - Neck pain [Not Recovered/Not Resolved]
  - Dizziness [Not Recovered/Not Resolved]

NARRATIVE: CASE EVENT DATE: 20181110
